FAERS Safety Report 7860974-3 (Version None)
Quarter: 2011Q4

REPORT INFORMATION
  Report Type: 
  Country: None (occurrence: None)
  Receive Date: 20111027
  Receipt Date: 20111018
  Transmission Date: 20120403
  Serious: Yes (Hospitalization)
  Sender: FDA-Public Use
  Company Number: US-GLAXOSMITHKLINE-A0897576A

PATIENT
  Age: 80 Year
  Sex: Male
  Weight: 95.5 kg

DRUGS (6)
  1. HYZAAR [Concomitant]
  2. SIMVASTATIN [Concomitant]
  3. AVANDIA [Suspect]
     Indication: DIABETES MELLITUS
     Dosage: 8MG PER DAY
     Dates: start: 20001001, end: 20070101
  4. DETROL [Concomitant]
  5. METOPROLOL TARTRATE [Concomitant]
  6. LASIX [Concomitant]

REACTIONS (1)
  - CEREBROVASCULAR ACCIDENT [None]
